FAERS Safety Report 6906195-X (Version None)
Quarter: 2010Q3

REPORT INFORMATION
  Report Type: 
  Country: None (occurrence: None)
  Receive Date: 20100804
  Receipt Date: 20100712
  Transmission Date: 20110219
  Serious: Yes (Other)
  Sender: FDA-Public Use
  Company Number: PHHO2010AR10683

PATIENT
  Sex: Male

DRUGS (6)
  1. LDT600 [Suspect]
     Indication: HEPATITIS B
     Dosage: 600 MG / DAY
     Route: 048
     Dates: start: 20081001, end: 20100519
  2. LOSARTAN [Concomitant]
  3. AMLODIPINE [Concomitant]
  4. CLONAZEPAM [Concomitant]
  5. IPRATROPIUM BROMIDE [Concomitant]
  6. ALBUTEROL [Concomitant]

REACTIONS (7)
  - BLOOD CREATINE PHOSPHOKINASE INCREASED [None]
  - HYPERLACTACIDAEMIA [None]
  - HYPOAESTHESIA [None]
  - LACTIC ACIDOSIS [None]
  - MUSCULAR WEAKNESS [None]
  - MYALGIA [None]
  - PARAESTHESIA [None]
